FAERS Safety Report 20049995 (Version 1)
Quarter: 2021Q4

REPORT INFORMATION
  Report Type: Spontaneous
  Country: CA (occurrence: CA)
  Receive Date: 20211109
  Receipt Date: 20211109
  Transmission Date: 20220303
  Serious: Yes (Other)
  Sender: FDA-Public Use
  Company Number: CA-PFIZER INC-202101479078

PATIENT
  Age: 59 Year

DRUGS (1)
  1. RITUXIMAB [Suspect]
     Active Substance: RITUXIMAB
     Indication: Scleromalacia
     Dosage: 100 MG
     Route: 042

REACTIONS (2)
  - Diverticulitis [Recovered/Resolved]
  - Off label use [Unknown]
